FAERS Safety Report 6144726-0 (Version None)
Quarter: 2009Q2

REPORT INFORMATION
  Report Type: 
  Country: None (occurrence: None)
  Receive Date: 20090401
  Receipt Date: 20090317
  Transmission Date: 20091009
  Serious: Yes (Hospitalization)
  Sender: FDA-Public Use
  Company Number: 2009002045

PATIENT
  Age: 62 Year
  Sex: Female
  Weight: 68 kg

DRUGS (7)
  1. TREANDA [Suspect]
     Indication: CHRONIC LYMPHOCYTIC LEUKAEMIA
     Dosage: 90 MG (90 MG, 1 IN 1 D), INTRAVENOUS
     Route: 042
     Dates: start: 20090226, end: 20090226
  2. CAMPATH [Suspect]
     Indication: CHRONIC LYMPHOCYTIC LEUKAEMIA
     Dosage: 30 MG (30 MG, 1 IN 1 D), SUBCUTANEOUS
     Route: 058
     Dates: start: 20090226, end: 20090226
  3. ALLOPURINOL [Concomitant]
  4. ACICLOVIR SODIUM (ACICLOVIR)(800 MILLIGRAM) [Concomitant]
  5. SULTAMETHOXAZOLE AND TRIMETHOPRIM(SULFAMETHOXAZOLE, TRIMETHOPRIM) [Concomitant]
  6. ENOXAPARIN SODIUM [Concomitant]
  7. OMEPRAZOLE [Concomitant]

REACTIONS (2)
  - GASTROENTERITIS [None]
  - HYPERPYREXIA [None]
